FAERS Safety Report 8290570-8 (Version None)
Quarter: 2012Q2

REPORT INFORMATION
  Report Type: 
  Country: None (occurrence: None)
  Receive Date: 20120417
  Receipt Date: 20120126
  Transmission Date: 20120825
  Serious: No
  Sender: FDA-Public Use
  Company Number: US-ASTRAZENECA-2012SE05252

PATIENT
  Age: 56 Year
  Sex: Female

DRUGS (3)
  1. OMEPRAZOLE [Interacting]
     Route: 048
  2. NEXIUM [Suspect]
     Route: 048
  3. UNSPECIFIED MEDICATION FOR NERVE DAMAGE [Interacting]
     Route: 065

REACTIONS (7)
  - CHEST PAIN [None]
  - CHOKING [None]
  - MALAISE [None]
  - DRUG DOSE OMISSION [None]
  - DRUG INTERACTION [None]
  - BACK PAIN [None]
  - NERVE INJURY [None]
